FAERS Safety Report 16016949 (Version 2)
Quarter: 2019Q2

REPORT INFORMATION
  Report Type: Spontaneous
  Country: ES (occurrence: ES)
  Receive Date: 20190228
  Receipt Date: 20190514
  Transmission Date: 20190711
  Serious: Yes (Hospitalization, Other)
  Sender: FDA-Public Use
  Company Number: ES-ASTRAZENECA-2019SE28701

PATIENT
  Age: 53 Year
  Sex: Male
  Weight: 95 kg

DRUGS (5)
  1. DAPAGLIFLOZIN. [Suspect]
     Active Substance: DAPAGLIFLOZIN
     Indication: TYPE 2 DIABETES MELLITUS
     Route: 048
     Dates: start: 20170206
  2. SIMVASTATIN. [Concomitant]
     Active Substance: SIMVASTATIN
     Indication: TYPE V HYPERLIPIDAEMIA
     Dosage: 40 MG 28 TABLETS
     Route: 048
     Dates: start: 20180201
  3. OPENVAS [Concomitant]
     Indication: HYPERTENSION
     Route: 048
     Dates: start: 20161027
  4. ADIRO [Concomitant]
     Active Substance: ASPIRIN
     Indication: TYPE V HYPERLIPIDAEMIA
     Route: 048
     Dates: start: 20141030
  5. VELMETIA [Concomitant]
     Active Substance: METFORMIN\SITAGLIPTIN
     Indication: TYPE 2 DIABETES MELLITUS
     Route: 048
     Dates: start: 20161027

REACTIONS (3)
  - Osteitis [Recovering/Resolving]
  - Skin ulcer [Recovering/Resolving]
  - Skin ulcer [Recovering/Resolving]

NARRATIVE: CASE EVENT DATE: 20181228
